FAERS Safety Report 7823406-7 (Version None)
Quarter: 2011Q4

REPORT INFORMATION
  Report Type: 
  Country: None (occurrence: None)
  Receive Date: 20111019
  Receipt Date: 20111006
  Transmission Date: 20120403
  Serious: Yes (Hospitalization)
  Sender: FDA-Public Use
  Company Number: JP-UCBSA-014653

PATIENT
  Age: 70 Year
  Sex: Female

DRUGS (33)
  1. ATORVASTATIN CALCIUM [Concomitant]
     Dates: start: 20060406
  2. SULPIRIDE [Suspect]
     Indication: DEPRESSIVE SYMPTOM
     Route: 048
     Dates: start: 20061221, end: 20100119
  3. SULPIRIDE [Suspect]
     Route: 048
     Dates: start: 20100120, end: 20110223
  4. MECOBALAMIN [Concomitant]
     Dates: start: 20060614
  5. FOLIC ACID [Concomitant]
     Dates: start: 20081224, end: 20100617
  6. FOLIC ACID [Concomitant]
     Dates: start: 20100705
  7. QUAZEPAM [Concomitant]
     Dates: start: 20110224
  8. LITHIUM CARBONATE [Suspect]
     Indication: MOOD ALTERED
  9. SULPIRIDE [Suspect]
     Indication: DEPRESSION
     Route: 048
     Dates: start: 20061221, end: 20100119
  10. SULPIRIDE [Suspect]
     Dates: start: 20110224
  11. SEDEKOPAN [Suspect]
     Indication: MOOD ALTERED
  12. SOFALCONE [Concomitant]
     Dates: start: 20100415
  13. IMIDAPRIL HYDROCHLORIDE [Concomitant]
     Dates: start: 20090806
  14. ZOLPIDEM TARTRATE [Concomitant]
     Dates: start: 20110224
  15. BERAPROST SODIUM [Concomitant]
     Dates: start: 20080213, end: 20100623
  16. AN EXTRACT OBTAINED FROM INFLAMMATORY RABBIT SKIN INOCULA [Concomitant]
     Dosage: 3 TABLETS DAILY
     Dates: start: 20080806
  17. METHOTREXATE [Concomitant]
     Dosage: 8 MG/WEEK (4MG-2MG-2MG)
     Dates: start: 20081222, end: 20100617
  18. KETOPROFEN [Concomitant]
     Dosage: QS
     Dates: start: 20090325, end: 20101001
  19. CERTOLIZUMAB PEGOL [Suspect]
     Indication: RHEUMATOID ARTHRITIS
     Dosage: C870-041
     Route: 058
     Dates: start: 20090416, end: 20090101
  20. CERTOLIZUMAB PEGOL [Suspect]
     Route: 058
     Dates: end: 20110622
  21. CARBAMAZEPINE [Suspect]
     Indication: DEPRESSIVE SYMPTOM
  22. SENNOSIDE [Concomitant]
     Dates: start: 20100527
  23. LANSOPRAZOLE [Concomitant]
     Dates: start: 20070129
  24. FERROUS SULFATE TAB [Concomitant]
     Dates: start: 20090820
  25. METHOTREXATE [Concomitant]
     Dosage: 8 MG WEEKLY IN THREE DIVIDED DOSES
     Dates: start: 20100705
  26. BERAPROST SODIUM [Concomitant]
     Dates: start: 20100705
  27. KETOPROFEN [Concomitant]
     Dosage: QS
     Dates: start: 20080806
  28. KETOPROFEN [Concomitant]
     Dosage: QS
     Dates: start: 20090423, end: 20091001
  29. CERTOLIZUMAB PEGOL [Suspect]
     Dosage: C870-041
     Route: 058
     Dates: start: 20090101, end: 20091015
  30. CERTOLIZUMAB PEGOL [Suspect]
     Route: 058
     Dates: start: 20091029
  31. SULPIRIDE [Suspect]
     Route: 048
     Dates: start: 20100120, end: 20110223
  32. SULPIRIDE [Suspect]
     Dates: start: 20110224
  33. MELOXICAM [Concomitant]
     Dates: start: 20080806

REACTIONS (2)
  - RHEUMATOID ARTHRITIS [None]
  - DEMENTIA [None]
